FAERS Safety Report 20852649 (Version 1)
Quarter: 2022Q2

REPORT INFORMATION
  Report Type: Spontaneous
  Country: JP (occurrence: JP)
  Receive Date: 20220520
  Receipt Date: 20220520
  Transmission Date: 20220720
  Serious: Yes (Hospitalization, Other)
  Sender: FDA-Public Use
  Company Number: None

PATIENT
  Sex: Female

DRUGS (10)
  1. PREDNISOLONE [Suspect]
     Active Substance: PREDNISOLONE
     Indication: Stevens-Johnson syndrome
     Dosage: UNK
     Route: 048
  2. PREDNISOLONE [Suspect]
     Active Substance: PREDNISOLONE
     Dosage: 60 MILLIGRAM/DAY
     Route: 042
  3. PREDNISOLONE [Suspect]
     Active Substance: PREDNISOLONE
     Dosage: UNK, TAPERED GRADUALLY
     Route: 042
  4. ACYCLOVIR [Suspect]
     Active Substance: ACYCLOVIR
     Indication: Stevens-Johnson syndrome
     Dosage: UNK
     Route: 065
  5. METHYLPREDNISOLONE [Suspect]
     Active Substance: METHYLPREDNISOLONE
     Indication: Stevens-Johnson syndrome
     Dosage: 1000 MG/DAY, PULSE
     Route: 042
  6. MINOCYCLINE [Concomitant]
     Active Substance: MINOCYCLINE HYDROCHLORIDE
     Indication: Stevens-Johnson syndrome
     Dosage: UNK
     Route: 065
  7. GATIFLOXACIN [Concomitant]
     Active Substance: GATIFLOXACIN
     Indication: Eye disorder
     Dosage: UNK
     Route: 061
  8. BETAMETHASONE [Concomitant]
     Active Substance: BETAMETHASONE
     Indication: Eye disorder
     Dosage: UNK
     Route: 061
  9. OXYGEN [Concomitant]
     Active Substance: OXYGEN
     Indication: Dyspnoea at rest
     Dosage: UNK
     Route: 065
  10. OXYGEN [Concomitant]
     Active Substance: OXYGEN
     Indication: Wheezing

REACTIONS (6)
  - Pneumothorax [Not Recovered/Not Resolved]
  - Pneumomediastinum [Not Recovered/Not Resolved]
  - Obliterative bronchiolitis [Not Recovered/Not Resolved]
  - Subcutaneous emphysema [Not Recovered/Not Resolved]
  - Therapy partial responder [Unknown]
  - Off label use [Unknown]
